FAERS Safety Report 23504575 (Version 1)
Quarter: 2024Q1

REPORT INFORMATION
  Report Type: Spontaneous
  Country: US (occurrence: None)
  Receive Date: 20240208
  Receipt Date: 20240208
  Transmission Date: 20240410
  Serious: No
  Sender: FDA-Public Use
  Company Number: None

PATIENT
  Age: 36 Year
  Sex: Female
  Weight: 56.25 kg

DRUGS (1)
  1. FLUCONAZOLE [Suspect]
     Active Substance: FLUCONAZOLE
     Indication: Vulvovaginal mycotic infection
     Dates: start: 20240112, end: 20240113

REACTIONS (3)
  - Stomatitis [None]
  - Skin lesion [None]
  - Skin discolouration [None]

NARRATIVE: CASE EVENT DATE: 20240113
